FAERS Safety Report 24898592 (Version 1)
Quarter: 2025Q1

REPORT INFORMATION
  Report Type: Spontaneous
  Country: CN (occurrence: CN)
  Receive Date: 20250129
  Receipt Date: 20250129
  Transmission Date: 20250409
  Serious: Yes (Other)
  Sender: ROCHE
  Company Number: CN-ROCHE-10000190706

PATIENT
  Age: 55 Year
  Sex: Female

DRUGS (1)
  1. RITUXIMAB [Suspect]
     Active Substance: RITUXIMAB
     Indication: Immune thrombocytopenia
     Route: 065

REACTIONS (6)
  - Off label use [Unknown]
  - Gastrointestinal haemorrhage [Unknown]
  - Brain stem haemorrhage [Unknown]
  - Haemorrhage urinary tract [Unknown]
  - Pulmonary alveolar haemorrhage [Unknown]
  - Haematemesis [Unknown]
